FAERS Safety Report 8594176-2 (Version None)
Quarter: 2012Q3

REPORT INFORMATION
  Report Type: 
  Country: None (occurrence: None)
  Receive Date: 20120814
  Receipt Date: 20120731
  Transmission Date: 20120928
  Serious: Yes (Other)
  Sender: FDA-Public Use
  Company Number: CHPA2012US017175

PATIENT
  Age: 65 Year
  Sex: Male

DRUGS (6)
  1. MICONAZOLE NITRATE [Suspect]
     Dosage: UNK, UNK
     Route: 061
  2. ASPIRIN [Concomitant]
  3. VALIUM [Concomitant]
  4. MICONAZOLE NITRATE [Suspect]
     Indication: TINEA PEDIS
     Dosage: UNK, TWICE PER DAY
     Route: 061
     Dates: end: 20120101
  5. ZOCOR [Concomitant]
  6. ANTIHYPERTENSIVE DRUGS [Concomitant]

REACTIONS (10)
  - THERAPEUTIC RESPONSE UNEXPECTED [None]
  - TINEA CRURIS [None]
  - INCORRECT DRUG ADMINISTRATION DURATION [None]
  - LACERATION [None]
  - APHASIA [None]
  - CARDIAC DISORDER [None]
  - CEREBROVASCULAR ACCIDENT [None]
  - ERYTHEMA [None]
  - WRONG TECHNIQUE IN DRUG USAGE PROCESS [None]
  - CORONARY ARTERY OCCLUSION [None]
